FAERS Safety Report 9115236 (Version 1)
Quarter: 2013Q1

REPORT INFORMATION
  Report Type: Spontaneous
  Country: US (occurrence: None)
  Receive Date: 20130220
  Receipt Date: 20130220
  Transmission Date: 20140127
  Serious: Yes (Hospitalization)
  Sender: FDA-Public Use
  Company Number: None

PATIENT
  Sex: Male
  Weight: 80 kg

DRUGS (2)
  1. 5-FU [Suspect]
  2. OXALIPLATIN [Suspect]

REACTIONS (4)
  - Pleuritic pain [None]
  - Dyspnoea [None]
  - Pulmonary embolism [None]
  - Venous thrombosis [None]
